FAERS Safety Report 18659040 (Version 2)
Quarter: 2021Q1

REPORT INFORMATION
  Report Type: Spontaneous
  Country: US (occurrence: US)
  Receive Date: 20201223
  Receipt Date: 20210104
  Transmission Date: 20210419
  Serious: Yes (Other)
  Sender: FDA-Public Use
  Company Number: US-PURDUE-USA-2020-0170808

PATIENT
  Sex: Female

DRUGS (7)
  1. OXYCONTIN [Suspect]
     Active Substance: OXYCODONE HYDROCHLORIDE
     Indication: PRODUCT USED FOR UNKNOWN INDICATION
     Dosage: 20MG
     Route: 048
  2. OXYCONTIN [Suspect]
     Active Substance: OXYCODONE HYDROCHLORIDE
     Dosage: 120 MG, DAILY
     Route: 048
  3. OXYCODONE HYDROCHLORIDE (SIMILAR TO NDA 22?272) [Suspect]
     Active Substance: OXYCODONE HYDROCHLORIDE
     Indication: PRODUCT USED FOR UNKNOWN INDICATION
     Dosage: 10MG
     Route: 048
  4. METHYLPREDNISOLONE. [Concomitant]
     Active Substance: METHYLPREDNISOLONE
     Indication: PRODUCT USED FOR UNKNOWN INDICATION
     Route: 065
  5. DIAZEPAM. [Concomitant]
     Active Substance: DIAZEPAM
     Indication: PRODUCT USED FOR UNKNOWN INDICATION
     Route: 065
  6. OXYCODONE HYDROCHLORIDE (SIMILAR TO NDA 22?272) [Suspect]
     Active Substance: OXYCODONE HYDROCHLORIDE
     Dosage: 180 MG, DAILY
     Route: 065
  7. KETOROLAC EG [Concomitant]
     Indication: PRODUCT USED FOR UNKNOWN INDICATION
     Route: 065

REACTIONS (53)
  - Candida infection [Unknown]
  - Adrenal insufficiency [Unknown]
  - Constipation [Unknown]
  - Myocardial infarction [Unknown]
  - Urinary incontinence [Unknown]
  - Normocytic anaemia [Unknown]
  - Social anxiety disorder [Unknown]
  - Neck pain [Unknown]
  - Pain [Unknown]
  - Neuropathy peripheral [Unknown]
  - Drug withdrawal syndrome [Unknown]
  - Hypothalamo-pituitary disorder [Unknown]
  - Hepatic steatosis [Unknown]
  - Rhinitis allergic [Unknown]
  - Chest pain [Unknown]
  - Immune system disorder [Unknown]
  - Tooth loss [Unknown]
  - Hyperlipidaemia [Unknown]
  - Impaired gastric emptying [Unknown]
  - Raynaud^s phenomenon [Unknown]
  - Arthralgia [Unknown]
  - Pain in extremity [Unknown]
  - Intestinal obstruction [Unknown]
  - Menopausal disorder [Unknown]
  - Abdominal discomfort [Unknown]
  - Memory impairment [Unknown]
  - Bipolar disorder [Unknown]
  - Endometriosis [Unknown]
  - Type 1 diabetes mellitus [Unknown]
  - Urinary tract infection [Unknown]
  - Weight increased [Unknown]
  - Anxiety disorder [Unknown]
  - Psoriasis [Unknown]
  - Oedema peripheral [Unknown]
  - Back pain [Unknown]
  - Sexual dysfunction [Unknown]
  - Drug dependence [Unknown]
  - Hypothyroidism [Unknown]
  - Asthma [Unknown]
  - Nephrolithiasis [Unknown]
  - Lacrimation decreased [Unknown]
  - Hyperhidrosis [Unknown]
  - Mouth ulceration [Unknown]
  - Confusional state [Unknown]
  - Hypertension [Unknown]
  - Depression [Unknown]
  - Fibromyalgia [Unknown]
  - Cystitis interstitial [Unknown]
  - Irritable bowel syndrome [Unknown]
  - Palpitations [Unknown]
  - Hyperglycaemia [Unknown]
  - Temperature intolerance [Unknown]
  - Headache [Unknown]
